FAERS Safety Report 5401997-3 (Version None)
Quarter: 2007Q3

REPORT INFORMATION
  Report Type: 
  Country: None (occurrence: None)
  Receive Date: 20070727
  Receipt Date: 20070713
  Transmission Date: 20080115
  Serious: Yes (Other)
  Sender: FDA-Public Use
  Company Number: A-JP2006-12338

PATIENT
  Age: 44 Year
  Sex: Male
  Weight: 65 kg

DRUGS (16)
  1. TRACLEER [Suspect]
     Indication: PULMONARY HYPERTENSION
     Dosage: 62.5 MG, QD, ORAL, 62.5 MG, BID, ORAL, 187.5 MG, QD, ORAL, 125 MG, BID, ORAL
     Route: 048
     Dates: start: 20050720, end: 20050726
  2. TRACLEER [Suspect]
     Indication: PULMONARY HYPERTENSION
     Dosage: 62.5 MG, QD, ORAL, 62.5 MG, BID, ORAL, 187.5 MG, QD, ORAL, 125 MG, BID, ORAL
     Route: 048
     Dates: start: 20050727, end: 20050808
  3. TRACLEER [Suspect]
     Indication: PULMONARY HYPERTENSION
     Dosage: 62.5 MG, QD, ORAL, 62.5 MG, BID, ORAL, 187.5 MG, QD, ORAL, 125 MG, BID, ORAL
     Route: 048
     Dates: start: 20050809, end: 20050809
  4. TRACLEER [Suspect]
     Indication: PULMONARY HYPERTENSION
     Dosage: 62.5 MG, QD, ORAL, 62.5 MG, BID, ORAL, 187.5 MG, QD, ORAL, 125 MG, BID, ORAL
     Route: 048
     Dates: start: 20050810
  5. BERAPROST SODIUM (BERAPROST SODIUM) [Suspect]
  6. AMLODIPINE BESYLATE [Concomitant]
  7. ASPIRIN [Concomitant]
  8. DIGOXIN [Concomitant]
  9. FUROSEMIDE [Concomitant]
  10. FAMOTIDINE [Concomitant]
  11. PRAVASTATIN [Concomitant]
  12. REBAMIPIDE (REBAMIPIDE) [Concomitant]
  13. PREDNISOLONE [Concomitant]
  14. CARBAZOCHROME SODIUM SULFONATE (CARBAZOCHROME SODIUM SULFONATE) [Concomitant]
  15. MAGNESIUM OXIDE (MAGNESIUM OXIDE) [Concomitant]
  16. OXYGEN (OXYGEN) [Concomitant]

REACTIONS (6)
  - ALANINE AMINOTRANSFERASE INCREASED [None]
  - ASPARTATE AMINOTRANSFERASE INCREASED [None]
  - BLOOD ALKALINE PHOSPHATASE INCREASED [None]
  - HAEMOPTYSIS [None]
  - PULMONARY HAEMORRHAGE [None]
  - RIGHT VENTRICULAR FAILURE [None]
